FAERS Safety Report 6908116-2 (Version None)
Quarter: 2010Q3

REPORT INFORMATION
  Report Type: 
  Country: None (occurrence: None)
  Receive Date: 20100805
  Receipt Date: 20100727
  Transmission Date: 20110219
  Serious: Yes (Hospitalization)
  Sender: FDA-Public Use
  Company Number: US-SANOFI-AVENTIS-2010SA045481

PATIENT
  Sex: Female

DRUGS (2)
  1. PLAVIX [Suspect]
     Route: 065
     Dates: end: 20100723
  2. ASPIRIN [Concomitant]
     Dates: end: 20100723

REACTIONS (2)
  - FALL [None]
  - SPINAL COMPRESSION FRACTURE [None]
